FAERS Safety Report 5750024-7 (Version None)
Quarter: 2008Q2

REPORT INFORMATION
  Report Type: 
  Country: None (occurrence: None)
  Receive Date: 20080527
  Receipt Date: 20080523
  Transmission Date: 20081010
  Serious: Yes (Life-Threatening, Other)
  Sender: FDA-Public Use
  Company Number: JP-BOEHRINGER INGELHEIM GMBH, GERMANY-2008-BP-06814NB

PATIENT
  Sex: Male
  Weight: 63 kg

DRUGS (6)
  1. BI-SIFROL TABLETS [Suspect]
     Indication: PARKINSON'S DISEASE
     Route: 048
     Dates: start: 20051001
  2. CABASER [Suspect]
     Indication: PARKINSON'S DISEASE
     Route: 048
     Dates: start: 20050801
  3. SELEGILINE HCL [Suspect]
     Indication: PARKINSON'S DISEASE
     Route: 048
  4. CARBIDOPA AND LEVODOPA [Suspect]
     Indication: PARKINSON'S DISEASE
     Route: 048
     Dates: start: 20050801
  5. COMTAN [Suspect]
     Indication: PARKINSON'S DISEASE
     Route: 048
     Dates: start: 20070901
  6. SENNOSIDE [Concomitant]
     Route: 048

REACTIONS (3)
  - ROAD TRAFFIC ACCIDENT [None]
  - SKIN LACERATION [None]
  - SUDDEN ONSET OF SLEEP [None]
